FAERS Safety Report 5406032-9 (Version None)
Quarter: 2007Q3

REPORT INFORMATION
  Report Type: 
  Country: None (occurrence: None)
  Receive Date: 20070806
  Receipt Date: 20070731
  Transmission Date: 20080115
  Serious: Yes (Hospitalization)
  Sender: FDA-Public Use
  Company Number: A0667345A

PATIENT
  Age: 56 Year
  Sex: Male

DRUGS (8)
  1. COREG [Suspect]
     Dosage: 12.5MG TWICE PER DAY
     Route: 065
     Dates: start: 20070201
  2. LISINOPRIL [Concomitant]
  3. PLAVIX [Concomitant]
  4. ASPIRIN [Concomitant]
  5. FRUSEMIDE [Concomitant]
  6. LIPITOR [Concomitant]
  7. VITAMIN [Concomitant]
  8. INSULIN [Concomitant]

REACTIONS (7)
  - CARDIOVASCULAR DISORDER [None]
  - DRUG INEFFECTIVE [None]
  - DYSPNOEA [None]
  - MUSCLE FATIGUE [None]
  - PHARMACEUTICAL PRODUCT COMPLAINT [None]
  - PITTING OEDEMA [None]
  - TYPE 1 DIABETES MELLITUS [None]
